FAERS Safety Report 18784407 (Version 2)
Quarter: 2022Q1

REPORT INFORMATION
  Report Type: Report from Study
  Country: US (occurrence: US)
  Receive Date: 20210125
  Receipt Date: 20220218
  Transmission Date: 20220423
  Serious: No
  Sender: FDA-Public Use
  Company Number: US-TAIHO ONCOLOGY INC-EU-2021-00198

PATIENT
  Age: 63 Year
  Sex: Male
  Weight: 84.444 kg

DRUGS (19)
  1. LONSURF [Suspect]
     Active Substance: TIPIRACIL HYDROCHLORIDE\TRIFLURIDINE
     Indication: Colon cancer
     Dosage: CYCLE 1
     Route: 048
     Dates: start: 20200303
  2. LONSURF [Suspect]
     Active Substance: TIPIRACIL HYDROCHLORIDE\TRIFLURIDINE
     Dosage: CYCLE 4 DAY 1
     Route: 048
     Dates: start: 20200526
  3. LONSURF [Suspect]
     Active Substance: TIPIRACIL HYDROCHLORIDE\TRIFLURIDINE
     Dosage: CYCLE 5 DAY 15
     Route: 048
     Dates: start: 20200721, end: 20200924
  4. FUROSEMIDE [Concomitant]
     Active Substance: FUROSEMIDE
  5. POTASSIUM [Concomitant]
     Active Substance: POTASSIUM
  6. TRAZODONE [Concomitant]
     Active Substance: TRAZODONE HYDROCHLORIDE
  7. MIRTAZAPINE [Concomitant]
     Active Substance: MIRTAZAPINE
  8. PROCHLORPERAZINE [Concomitant]
     Active Substance: PROCHLORPERAZINE
  9. XARELTO [Concomitant]
     Active Substance: RIVAROXABAN
  10. OXYCODONE [Concomitant]
     Active Substance: OXYCODONE
  11. NEULASTA [Concomitant]
     Active Substance: PEGFILGRASTIM
  12. LACTULOSE [Concomitant]
     Active Substance: LACTULOSE
  13. ONDANSETRON [Concomitant]
     Active Substance: ONDANSETRON
  14. AUGMENTIN [Concomitant]
     Active Substance: AMOXICILLIN\CLAVULANATE POTASSIUM
  15. METOCLOPRAMIDE [Concomitant]
     Active Substance: METOCLOPRAMIDE
  16. CHLORPROMAZINE [Concomitant]
     Active Substance: CHLORPROMAZINE
  17. BACLOFEN [Concomitant]
     Active Substance: BACLOFEN
  18. PAROXETINE [Concomitant]
     Active Substance: PAROXETINE
  19. ZOLPIDEM [Concomitant]
     Active Substance: ZOLPIDEM TARTRATE

REACTIONS (1)
  - Disease progression [Unknown]
